FAERS Safety Report 23406801 (Version 1)
Quarter: 2024Q1

REPORT INFORMATION
  Report Type: Spontaneous
  Country: GB (occurrence: GB)
  Receive Date: 20240116
  Receipt Date: 20240116
  Transmission Date: 20240410
  Serious: Yes (Other)
  Sender: FDA-Public Use
  Company Number: None

PATIENT
  Age: 36 Year
  Sex: Female

DRUGS (30)
  1. ELEXACAFTOR\IVACAFTOR\TEZACAFTOR [Suspect]
     Active Substance: ELEXACAFTOR\IVACAFTOR\TEZACAFTOR
     Indication: Cystic fibrosis
     Dosage: 100MG/50MG/75MG TABLET - TWO TABLETS MANE
     Route: 048
     Dates: start: 20210221
  2. KALYDECO [Suspect]
     Active Substance: IVACAFTOR
     Indication: Cystic fibrosis
     Dosage: 150 MG IN THE NOCTE
     Route: 048
     Dates: start: 20210221
  3. CAYSTON [Concomitant]
     Active Substance: AZTREONAM
     Indication: Adverse drug reaction
  4. CAYSTON [Concomitant]
     Active Substance: AZTREONAM
     Indication: Cystic fibrosis
  5. CREON [Concomitant]
     Active Substance: PANCRELIPASE AMYLASE\PANCRELIPASE LIPASE\PANCRELIPASE PROTEASE
     Indication: Adverse drug reaction
  6. CREON [Concomitant]
     Active Substance: PANCRELIPASE AMYLASE\PANCRELIPASE LIPASE\PANCRELIPASE PROTEASE
     Indication: Pancreatic failure
  7. FIASP [Concomitant]
     Active Substance: INSULIN ASPART
     Indication: Adverse drug reaction
  8. FIASP [Concomitant]
     Active Substance: INSULIN ASPART
     Indication: Cystic fibrosis related diabetes
  9. FOLIC ACID [Concomitant]
     Active Substance: FOLIC ACID
     Indication: Vitamin supplementation
  10. FOLIC ACID [Concomitant]
     Active Substance: FOLIC ACID
     Indication: Vitamin supplementation
  11. LANSOPRAZOLE [Concomitant]
     Active Substance: LANSOPRAZOLE
     Indication: Adverse drug reaction
  12. LANSOPRAZOLE [Concomitant]
     Active Substance: LANSOPRAZOLE
     Indication: Gastrooesophageal reflux disease
  13. LANTUS [Concomitant]
     Active Substance: INSULIN GLARGINE
     Indication: Adverse drug reaction
  14. LANTUS [Concomitant]
     Active Substance: INSULIN GLARGINE
     Indication: Cystic fibrosis related diabetes
  15. MINOCYCLINE [Concomitant]
     Active Substance: MINOCYCLINE HYDROCHLORIDE
     Indication: Adverse drug reaction
     Dates: end: 202310
  16. MINOCYCLINE [Concomitant]
     Active Substance: MINOCYCLINE HYDROCHLORIDE
     Indication: Infective pulmonary exacerbation of cystic fibrosis
  17. PULMOZYME [Concomitant]
     Active Substance: DORNASE ALFA
     Indication: Adverse drug reaction
  18. PULMOZYME [Concomitant]
     Active Substance: DORNASE ALFA
     Indication: Cystic fibrosis
  19. LEVOFLOXACIN [Concomitant]
     Active Substance: LEVOFLOXACIN
     Indication: Adverse drug reaction
     Dates: end: 202310
  20. LEVOFLOXACIN [Concomitant]
     Active Substance: LEVOFLOXACIN
     Indication: Cystic fibrosis
  21. ALBUTEROL [Concomitant]
     Active Substance: ALBUTEROL
     Indication: Adverse drug reaction
  22. ALBUTEROL [Concomitant]
     Active Substance: ALBUTEROL
     Indication: Cystic fibrosis
  23. VITAMIN D [Concomitant]
     Active Substance: VITAMIN D NOS
     Indication: Adverse drug reaction
  24. VITAMIN D [Concomitant]
     Active Substance: VITAMIN D NOS
     Indication: Pancreatic failure
  25. VITAMIN E [Concomitant]
     Active Substance: .ALPHA.-TOCOPHEROL
     Indication: Adverse drug reaction
  26. VITAMIN E [Concomitant]
     Active Substance: .ALPHA.-TOCOPHEROL
     Indication: Cystic fibrosis
  27. VITAMIN D SUBSTANCES [Concomitant]
     Indication: Pancreatic failure
  28. VITAMIN E SUBSTANCES [Concomitant]
     Indication: Cystic fibrosis
  29. SPIRIVA [Concomitant]
     Active Substance: TIOTROPIUM BROMIDE MONOHYDRATE
     Indication: Cystic fibrosis
  30. CALCIUM CARBONATE\CHOLECALCIFEROL [Concomitant]
     Active Substance: CALCIUM CARBONATE\CHOLECALCIFEROL
     Indication: Cystic fibrosis

REACTIONS (2)
  - Ectopic pregnancy [Not Recovered/Not Resolved]
  - Exposure during pregnancy [Unknown]

NARRATIVE: CASE EVENT DATE: 20231101
